FAERS Safety Report 21726872 (Version 2)
Quarter: 2022Q4

REPORT INFORMATION
  Report Type: Spontaneous
  Country: US (occurrence: US)
  Receive Date: 20221214
  Receipt Date: 20221219
  Transmission Date: 20230113
  Serious: No
  Sender: FDA-Public Use
  Company Number: US-BAYER-2022A161328

PATIENT
  Age: 56 Year
  Sex: Female
  Weight: 44.898 kg

DRUGS (6)
  1. CLARITIN [Suspect]
     Active Substance: LORATADINE
  2. REMODULIN [Concomitant]
     Active Substance: TREPROSTINIL
     Dosage: 0.035 ?G/KG
     Route: 058
  3. REMODULIN [Concomitant]
     Active Substance: TREPROSTINIL
     Dosage: 0.037 ?G/KG
     Route: 058
     Dates: start: 202209
  4. REMODULIN [Concomitant]
     Active Substance: TREPROSTINIL
     Dosage: 2.5 MG/ML
  5. CHLORPHENIRAMINE [Concomitant]
     Active Substance: CHLORPHENIRAMINE
  6. PEPCID [Concomitant]
     Active Substance: FAMOTIDINE

REACTIONS (2)
  - Dry skin [Unknown]
  - Dry mouth [None]
